FAERS Safety Report 4835394-6 (Version None)
Quarter: 2005Q4

REPORT INFORMATION
  Report Type: 
  Country: None (occurrence: None)
  Receive Date: 20051118
  Receipt Date: 20051107
  Transmission Date: 20060501
  Serious: Yes (Hospitalization)
  Sender: FDA-Public Use
  Company Number: 2005BI013701

PATIENT
  Sex: Female
  Weight: 82.5547 kg

DRUGS (18)
  1. AVONEX [Suspect]
     Indication: MULTIPLE SCLEROSIS
     Dosage: 30 UG; QW; IM
     Route: 030
     Dates: start: 20030912
  2. AVONEX [Suspect]
     Indication: MULTIPLE SCLEROSIS
     Dosage: 30 UG; QW; IM
     Route: 030
  3. CYMBALTA [Concomitant]
  4. GLUCOPHAGE [Concomitant]
  5. MOTRIN [Concomitant]
  6. NEURONTIN [Concomitant]
  7. NOVOLOG [Concomitant]
  8. PRINIVIL [Concomitant]
  9. ACTOS [Concomitant]
  10. ADVAIR DISKUS 100/50 [Concomitant]
  11. PROVENTIL [Concomitant]
  12. DURADRIN [Concomitant]
  13. VICODIN [Concomitant]
  14. LANTUS [Concomitant]
  15. PRANDIN [Concomitant]
  16. MIDRIN [Concomitant]
  17. TYLENOL ES [Concomitant]
  18. MOVOLOG [Concomitant]

REACTIONS (31)
  - ANAEMIA [None]
  - ATELECTASIS [None]
  - BACTERAEMIA [None]
  - BLOOD ALBUMIN DECREASED [None]
  - BLOOD ALKALINE PHOSPHATASE INCREASED [None]
  - BLOOD CHOLESTEROL INCREASED [None]
  - BLOOD GLUCOSE INCREASED [None]
  - BLOOD IRON DECREASED [None]
  - BLOOD TRIGLYCERIDES INCREASED [None]
  - CONDITION AGGRAVATED [None]
  - CYSTITIS [None]
  - GLYCOSYLATED HAEMOGLOBIN INCREASED [None]
  - HEPATIC FUNCTION ABNORMAL [None]
  - HIGH DENSITY LIPOPROTEIN DECREASED [None]
  - LUNG ABSCESS [None]
  - LUNG INFECTION [None]
  - METASTASES TO LUNG [None]
  - MITRAL VALVE INCOMPETENCE [None]
  - MULTIPLE SCLEROSIS [None]
  - PLEURAL EFFUSION [None]
  - PNEUMONIA KLEBSIELLA [None]
  - PULMONARY CONGESTION [None]
  - PULMONARY EMBOLISM [None]
  - RENAL ABSCESS [None]
  - SEPTIC EMBOLUS [None]
  - TREATMENT NONCOMPLIANCE [None]
  - TRICUSPID VALVE INCOMPETENCE [None]
  - URINARY TRACT INFECTION ENTEROCOCCAL [None]
  - VERTIGO [None]
  - VERY LOW DENSITY LIPOPROTEIN DECREASED [None]
  - WEIGHT DECREASED [None]
